FAERS Safety Report 5165043-1 (Version None)
Quarter: 2006Q4

REPORT INFORMATION
  Report Type: 
  Country: None (occurrence: None)
  Receive Date: 20061124
  Receipt Date: 20061113
  Transmission Date: 20070319
  Serious: Yes (Hospitalization)
  Sender: FDA-Public Use
  Company Number: 2006114430

PATIENT
  Age: 16 Year
  Sex: Male
  Weight: 42.5 kg

DRUGS (5)
  1. VFEND [Suspect]
     Indication: BRONCHOPULMONARY ASPERGILLOSIS
     Dosage: 600 MG (300 MG, 2 IN 1 D), ORAL
     Route: 048
     Dates: start: 20050101, end: 20060907
  2. VFEND [Suspect]
     Indication: BRONCHOPULMONARY ASPERGILLOSIS
     Dosage: 240 MG (120 MG, 2 IN 1 D) INTRAVENOUS
     Route: 042
     Dates: start: 20060907, end: 20060911
  3. FUNGIZONE [Concomitant]
  4. SULFAMETHOXAZOLE + TRIMETHOPRIM [Concomitant]
  5. MEROPEN (MEROPENEM) [Concomitant]

REACTIONS (5)
  - DRUG LEVEL INCREASED [None]
  - MALAISE [None]
  - MYALGIA [None]
  - PNEUMONIA [None]
  - PYREXIA [None]
